FAERS Safety Report 5510383-7 (Version None)
Quarter: 2007Q4

REPORT INFORMATION
  Report Type: 
  Country: None (occurrence: None)
  Receive Date: 20071108
  Receipt Date: 20071031
  Transmission Date: 20080405
  Serious: Yes (Disabling)
  Sender: FDA-Public Use
  Company Number: JP-PFIZER INC-2007083489

PATIENT
  Age: 40 Year
  Sex: Male

DRUGS (3)
  1. DOXAZOSIN MESYLATE [Suspect]
     Indication: HYPERTENSION
     Dosage: DAILY DOSE:2MG
     Route: 048
  2. CALBLOCK [Suspect]
     Indication: HYPERTENSION
     Route: 048
  3. OLMETEC [Suspect]
     Indication: HYPERTENSION
     Route: 048

REACTIONS (1)
  - ERECTILE DYSFUNCTION [None]
